FAERS Safety Report 15664987 (Version 1)
Quarter: 2018Q4

REPORT INFORMATION
  Report Type: Report from Study
  Country: US (occurrence: US)
  Receive Date: 20181128
  Receipt Date: 20181128
  Transmission Date: 20190205
  Serious: Yes (Other)
  Sender: FDA-Public Use
  Company Number: US-SA-2018SA322254

PATIENT
  Sex: Female

DRUGS (1)
  1. DOXYLAMINE SUCCINATE. [Suspect]
     Active Substance: DOXYLAMINE SUCCINATE
     Dosage: UNK

REACTIONS (1)
  - Drug dependence [Unknown]
